FAERS Safety Report 21441246 (Version 1)
Quarter: 2022Q4

REPORT INFORMATION
  Report Type: Spontaneous
  Country: CH (occurrence: CH)
  Receive Date: 20221011
  Receipt Date: 20221011
  Transmission Date: 20230112
  Serious: Yes (Other)
  Sender: FDA-Public Use
  Company Number: CH-TAKEDA-2022TUS071188

PATIENT

DRUGS (1)
  1. MARIBAVIR [Suspect]
     Active Substance: MARIBAVIR
     Indication: Product used for unknown indication
     Dosage: UNK
     Route: 065

REACTIONS (3)
  - Cytomegalovirus chorioretinitis [Unknown]
  - Haemolytic anaemia [Unknown]
  - Aplasia pure red cell [Unknown]
